FAERS Safety Report 7734919-0 (Version None)
Quarter: 2011Q3

REPORT INFORMATION
  Report Type: 
  Country: None (occurrence: None)
  Receive Date: 20110907
  Receipt Date: 20110829
  Transmission Date: 20111222
  Serious: Yes (Other)
  Sender: FDA-Public Use
  Company Number: US-TYCO HEALTHCARE/MALLINCKRODT-T201101463

PATIENT

DRUGS (1)
  1. EXALGO [Suspect]

REACTIONS (1)
  - INTESTINAL OBSTRUCTION [None]
